FAERS Safety Report 6715892 (Version 7)
Quarter: 2013Q2

REPORT INFORMATION
  Report Type: Spontaneous
  Country: US (occurrence: US)
  Receive Date: 20080801
  Receipt Date: 20130528
  Transmission Date: 20140414
  Serious: Yes (Other)
  Sender: FDA-Public Use
  Company Number: US-BAYER-200829294NA

PATIENT
  Sex: Male
  Weight: 87.53 kg

DRUGS (26)
  1. MAGNEVIST [Suspect]
     Indication: NUCLEAR MAGNETIC RESONANCE IMAGING
     Dosage: UNK UNK, ONCE
     Dates: start: 20020328, end: 20020328
  2. OMNISCAN [Suspect]
     Indication: PRODUCT USED FOR UNKNOWN INDICATION
  3. OPTIMARK [Suspect]
     Indication: PRODUCT USED FOR UNKNOWN INDICATION
  4. MULTIHANCE [GADOBENIC ACID MEGLUMINE] [Suspect]
     Indication: PRODUCT USED FOR UNKNOWN INDICATION
  5. PROHANCE [GADOTERIDOL] [Suspect]
     Indication: PRODUCT USED FOR UNKNOWN INDICATION
  6. EPOGEN [Concomitant]
  7. GLIPIZIDE [Concomitant]
  8. LANTUS [Concomitant]
  9. WARFARIN [Concomitant]
  10. PREDNISONE [Concomitant]
  11. PROGRAF [Concomitant]
  12. CELLCEPT [Concomitant]
  13. SYNTHROID [Concomitant]
  14. IRON SULFATE [Concomitant]
  15. COZAAR [Concomitant]
  16. TOPROL [Concomitant]
  17. AMLODIPINE BESYLATE [Concomitant]
  18. FUROSEMIDE [Concomitant]
  19. PROTONIX [Concomitant]
  20. ALLOPURINOL [Concomitant]
  21. COLCHICINE [Concomitant]
  22. LIPITOR [Concomitant]
  23. FISH OIL [Concomitant]
  24. NORVASC [Concomitant]
  25. ROCALTROL [Concomitant]
  26. JANUVIA [Concomitant]

REACTIONS (22)
  - Nephrogenic systemic fibrosis [Not Recovered/Not Resolved]
  - Injury [Not Recovered/Not Resolved]
  - Arthralgia [Not Recovered/Not Resolved]
  - Back pain [Not Recovered/Not Resolved]
  - Anxiety [None]
  - General physical health deterioration [Not Recovered/Not Resolved]
  - Emotional distress [None]
  - Mobility decreased [Not Recovered/Not Resolved]
  - Joint swelling [Not Recovered/Not Resolved]
  - Muscular weakness [Not Recovered/Not Resolved]
  - Pruritus [Not Recovered/Not Resolved]
  - Skin induration [Not Recovered/Not Resolved]
  - Skin ulcer [Not Recovered/Not Resolved]
  - Rash [Not Recovered/Not Resolved]
  - Mobility decreased [Not Recovered/Not Resolved]
  - Discomfort [Not Recovered/Not Resolved]
  - Joint instability [Not Recovered/Not Resolved]
  - Pain [Not Recovered/Not Resolved]
  - Fatigue [Not Recovered/Not Resolved]
  - Local swelling [Not Recovered/Not Resolved]
  - Rash pruritic [Not Recovered/Not Resolved]
  - Genital lesion [Not Recovered/Not Resolved]
